FAERS Safety Report 20048479 (Version 1)
Quarter: 2021Q4

REPORT INFORMATION
  Report Type: Spontaneous
  Country: US (occurrence: US)
  Receive Date: 20211109
  Receipt Date: 20211109
  Transmission Date: 20220304
  Serious: No
  Sender: FDA-Public Use
  Company Number: US-PFIZER INC-202101368429

PATIENT
  Age: 56 Year
  Sex: Female

DRUGS (1)
  1. IBRANCE [Suspect]
     Active Substance: PALBOCICLIB
     Dosage: 125 MG
     Dates: start: 20210927, end: 20211017

REACTIONS (4)
  - White blood cell count decreased [Unknown]
  - Stomatitis [Unknown]
  - Neutrophil count decreased [Unknown]
  - Fatigue [Unknown]
